FAERS Safety Report 8282129 (Version 3)
Quarter: 2012Q4

REPORT INFORMATION
  Report Type: 
  Country: US (occurrence: US)
  Receive Date: 20111209
  Receipt Date: 20121031
  Transmission Date: 20130627
  Serious: No
  Sender: FDA-Public Use
  Company Number: PHEH2011US010974

PATIENT
  Age: 64 Year
  Sex: Male

DRUGS (8)
  1. GILENYA [Suspect]
     Indication: MULTIPLE SCLEROSIS
     Dosage: 0.5 mg, QD
     Route: 048
     Dates: start: 20110328, end: 20111116
  2. GILENYA [Suspect]
     Dosage: 0.5 mg, QD
     Route: 048
  3. LISINOPRIL [Concomitant]
     Dosage: 2.5 mg, daily
  4. SPIRONOLACTONE [Concomitant]
     Dosage: 25 mg, daily
  5. ATENOLOL [Concomitant]
     Dosage: 50 mg, daily
  6. TAMSULOSIN [Concomitant]
     Dosage: 0.4 mg, daily
  7. ASPIRIN [Concomitant]
     Dosage: 325 mg, daily
  8. SIMVASTATIN [Concomitant]
     Dosage: 20 mg, daily

REACTIONS (1)
  - Blindness transient [Recovered/Resolved]
